FAERS Safety Report 21886115 (Version 1)
Quarter: 2023Q1

REPORT INFORMATION
  Report Type: Spontaneous
  Country: US (occurrence: US)
  Receive Date: 20230119
  Receipt Date: 20230119
  Transmission Date: 20230418
  Serious: Yes (Hospitalization)
  Sender: FDA-Public Use
  Company Number: US-BRISTOL-MYERS SQUIBB COMPANY-2023-008203

PATIENT
  Age: 70 Year
  Sex: Female
  Weight: 109.77 kg

DRUGS (6)
  1. ELIQUIS [Suspect]
     Active Substance: APIXABAN
     Indication: Cerebrovascular accident prophylaxis
     Dosage: DOSE : 5 MG;     FREQ : TWICE A DAY
     Route: 048
     Dates: start: 202208
  2. ELIQUIS [Suspect]
     Active Substance: APIXABAN
     Dosage: DOSE : 5 MG;     FREQ : TWICE A DAY
     Route: 048
  3. VITAMINS NOS [Concomitant]
     Active Substance: VITAMINS
     Indication: Product used for unknown indication
  4. LOSARTAN [Concomitant]
     Active Substance: LOSARTAN
     Indication: Product used for unknown indication
  5. METOPROLOL [Concomitant]
     Active Substance: METOPROLOL
     Indication: Product used for unknown indication
  6. CALCIUM COMPOUNDS [Concomitant]
     Indication: Product used for unknown indication

REACTIONS (2)
  - COVID-19 [Unknown]
  - Chromaturia [Unknown]

NARRATIVE: CASE EVENT DATE: 20220101
